FAERS Safety Report 8783604 (Version 1)
Quarter: 2012Q4

REPORT INFORMATION
  Report Type: Report from Study
  Country: US (occurrence: US)
  Receive Date: 20120913
  Receipt Date: 20120913
  Transmission Date: 20130627
  Serious: No
  Sender: FDA-Public Use
  Company Number: US-VERTEX PHARMACEUTICAL INC.-AE-2012-008564

PATIENT
  Age: 57 Year
  Sex: Female
  Weight: 79.55 kg

DRUGS (10)
  1. INCIVEK [Suspect]
     Indication: HEPATITIS C
     Route: 048
  2. RIBAVIRIN [Concomitant]
     Indication: HEPATITIS C
  3. PEGASYS [Concomitant]
     Indication: HEPATITIS C
  4. IBUPROFEN IB [Concomitant]
  5. XANAX [Concomitant]
  6. FLAX SEED OIL [Concomitant]
  7. CALCIUM [Concomitant]
  8. MAGNESIUM CL [Concomitant]
  9. COQ 10 [Concomitant]
  10. MULTIMEGA TAB MINERAL [Concomitant]

REACTIONS (2)
  - Dry mouth [Unknown]
  - Rash [Recovered/Resolved]
